FAERS Safety Report 7125481-4 (Version None)
Quarter: 2010Q4

REPORT INFORMATION
  Report Type: 
  Country: None (occurrence: None)
  Receive Date: 20101129
  Receipt Date: 20101112
  Transmission Date: 20110411
  Serious: Yes (Other)
  Sender: FDA-Public Use
  Company Number: DE-CELGENEUS-062-21880-10080146

PATIENT

DRUGS (27)
  1. REVLIMID [Suspect]
     Dosage: 25-50 MG
     Route: 048
     Dates: end: 20090430
  2. TRAMADOL HCL [Concomitant]
     Route: 065
     Dates: start: 20090301, end: 20090101
  3. SEVREDOL [Concomitant]
     Route: 065
     Dates: start: 20090320
  4. SEVREDOL [Concomitant]
     Route: 065
     Dates: start: 20090322, end: 20090325
  5. SEVREDOL [Concomitant]
     Route: 065
     Dates: start: 20090409, end: 20090409
  6. SEVREDOL [Concomitant]
     Route: 065
     Dates: start: 20090414, end: 20090415
  7. OPIUM [Concomitant]
     Route: 048
     Dates: start: 20090320
  8. LOPERAMIDE [Concomitant]
     Route: 065
     Dates: start: 20090319, end: 20090319
  9. LOPERAMIDE [Concomitant]
     Route: 065
     Dates: start: 20090320, end: 20090322
  10. LOPERAMIDE [Concomitant]
     Route: 065
     Dates: start: 20090323
  11. ALLOPURINOL [Concomitant]
     Indication: PROPHYLAXIS
     Route: 065
     Dates: start: 20090304
  12. TAVANIC [Concomitant]
     Indication: INFECTION PROPHYLAXIS
     Route: 065
     Dates: start: 20090304, end: 20090320
  13. FLUCONAZOLE [Concomitant]
     Indication: ANTIFUNGAL PROPHYLAXIS
     Route: 065
     Dates: start: 20090319, end: 20090430
  14. CIPRO [Concomitant]
     Indication: INFECTION PROPHYLAXIS
     Route: 065
     Dates: start: 20090321, end: 20090321
  15. COTRIM [Concomitant]
     Indication: INFECTION PROPHYLAXIS
     Route: 065
     Dates: start: 20090322, end: 20090323
  16. PREDNISOLONE [Concomitant]
     Indication: SWELLING
     Route: 065
     Dates: start: 20090321
  17. KALINOR [Concomitant]
     Route: 065
     Dates: start: 20090325, end: 20090326
  18. PARACETAMOL [Concomitant]
     Route: 048
     Dates: start: 20090404, end: 20090413
  19. TAZOBAC [Concomitant]
     Route: 051
     Dates: start: 20090408, end: 20090413
  20. METAMIZOL [Concomitant]
     Route: 065
     Dates: start: 20090408
  21. CLINDAMYCIN [Concomitant]
     Route: 065
     Dates: start: 20090414, end: 20090419
  22. ZIENAM [Concomitant]
     Route: 065
     Dates: start: 20090413, end: 20090420
  23. PARACODEINE [Concomitant]
     Route: 065
     Dates: start: 20090412, end: 20090417
  24. PANTHENOL [Concomitant]
     Indication: DRY MOUTH
     Route: 065
     Dates: start: 20090412
  25. SOLU DECORTIN H [Concomitant]
     Indication: PROPHYLAXIS
     Route: 065
     Dates: start: 20090419, end: 20090419
  26. SOLU DECORTIN H [Concomitant]
     Route: 065
     Dates: start: 20090427, end: 20090427
  27. RED BLOOD CELLS [Concomitant]
     Route: 051

REACTIONS (25)
  - ANAEMIA [None]
  - CHEILITIS [None]
  - CHILLS [None]
  - CONSTIPATION [None]
  - COUGH [None]
  - DECREASED APPETITE [None]
  - DIARRHOEA HAEMORRHAGIC [None]
  - DRY MOUTH [None]
  - DYSPNOEA [None]
  - DYSPNOEA EXERTIONAL [None]
  - EYELID OEDEMA [None]
  - FACE OEDEMA [None]
  - FEBRILE NEUTROPENIA [None]
  - INJECTION SITE INFLAMMATION [None]
  - NIGHT SWEATS [None]
  - OEDEMA PERIPHERAL [None]
  - OROPHARYNGEAL PAIN [None]
  - PAIN IN EXTREMITY [None]
  - PETECHIAE [None]
  - PRODUCTIVE COUGH [None]
  - PRURITUS [None]
  - PYREXIA [None]
  - TACHYCARDIA [None]
  - THROMBOCYTOPENIA [None]
  - VERTIGO [None]
